FAERS Safety Report 9552288 (Version 1)
Quarter: 2013Q3

REPORT INFORMATION
  Report Type: Spontaneous
  Country: US (occurrence: None)
  Receive Date: 20130924
  Receipt Date: 20130924
  Transmission Date: 20140515
  Serious: Yes (Hospitalization)
  Sender: FDA-Public Use
  Company Number: None

PATIENT
  Age: 80 Year
  Sex: Female
  Weight: 81.6 kg

DRUGS (2)
  1. NORTRIPTYLINE [Suspect]
     Indication: DEPRESSION
     Dosage: AT BEDTIME, BY MOUTH
     Route: 048
     Dates: start: 20130903
  2. NORTRIPTYLINE [Suspect]
     Indication: INSOMNIA
     Dosage: AT BEDTIME, BY MOUTH
     Route: 048
     Dates: start: 20130903

REACTIONS (4)
  - Lethargy [None]
  - Mental status changes [None]
  - Overdose [None]
  - Confusional state [None]
